FAERS Safety Report 17050496 (Version 2)
Quarter: 2020Q1

REPORT INFORMATION
  Report Type: Spontaneous
  Country: US (occurrence: US)
  Receive Date: 20191119
  Receipt Date: 20200228
  Transmission Date: 20200409
  Serious: No
  Sender: FDA-Public Use
  Company Number: US-EX USA HOLDINGS-EXHL20192436

PATIENT

DRUGS (2)
  1. KEPPRA [Concomitant]
     Active Substance: LEVETIRACETAM
     Indication: SEIZURE
     Dosage: DAILY
     Route: 048
  2. SLYND [Suspect]
     Active Substance: DROSPIRENONE
     Indication: MENSTRUATION IRREGULAR
     Dosage: 4 MG TABLET, ONE TIME ONLY
     Route: 048
     Dates: start: 20191001, end: 20191001

REACTIONS (2)
  - Vomiting [Recovered/Resolved]
  - Intentional product use issue [Unknown]

NARRATIVE: CASE EVENT DATE: 20191001
